FAERS Safety Report 6766726-X (Version None)
Quarter: 2010Q2

REPORT INFORMATION
  Report Type: 
  Country: None (occurrence: None)
  Receive Date: 20100611
  Receipt Date: 20100607
  Transmission Date: 20101027
  Serious: Yes (Life-Threatening, Hospitalization, Other)
  Sender: FDA-Public Use
  Company Number: US-ELI_LILLY_AND_COMPANY-US201005001341

PATIENT
  Sex: Male
  Weight: 111.11 kg

DRUGS (3)
  1. EFFIENT [Suspect]
     Indication: PERCUTANEOUS CORONARY INTERVENTION
     Dosage: 60 MG, OTHER
     Route: 048
     Dates: start: 20100311
  2. EFFIENT [Suspect]
     Dosage: 10 MG, UNKNOWN
     Dates: end: 20100513
  3. ASPIRIN [Concomitant]

REACTIONS (4)
  - IMPLANTABLE DEFIBRILLATOR INSERTION [None]
  - MALAISE [None]
  - OPERATIVE HAEMORRHAGE [None]
  - PERICARDIAL HAEMORRHAGE [None]
